FAERS Safety Report 5780612-3 (Version None)
Quarter: 2008Q2

REPORT INFORMATION
  Report Type: 
  Country: None (occurrence: None)
  Receive Date: 20080620
  Receipt Date: 20080612
  Transmission Date: 20081010
  Serious: Yes (Hospitalization)
  Sender: FDA-Public Use
  Company Number: US-ELI_LILLY_AND_COMPANY-US200804006905

PATIENT
  Sex: Female
  Weight: 72.562 kg

DRUGS (9)
  1. BYETTA [Suspect]
     Indication: TYPE 2 DIABETES MELLITUS
     Dosage: 5 UG, 2/D
     Route: 058
     Dates: start: 20070601, end: 20080201
  2. BYETTA [Suspect]
     Dosage: 10 UG, 2/D
     Route: 058
     Dates: start: 20080201, end: 20080304
  3. BYETTA [Suspect]
     Dosage: 10 UG, 2/D
     Route: 058
     Dates: start: 20080310
  4. ACTOS [Concomitant]
     Indication: DIABETES MELLITUS
     Dosage: 45 MG, DAILY (1/D)
     Route: 048
     Dates: end: 20080304
  5. ACTOS [Concomitant]
     Dosage: 45 MG, DAILY (1/D)
     Route: 048
     Dates: start: 20080310
  6. ASPIRIN [Concomitant]
     Dosage: 81 MG, DAILY (1/D)
     Route: 048
  7. VYTORIN [Concomitant]
     Dosage: UNK, DAILY (1/D)
     Route: 048
  8. PEPCID [Concomitant]
     Dosage: 20 MG, 2/D
     Route: 048
  9. TOPROL-XL [Concomitant]
     Dosage: 25 MG, DAILY (1/D)
     Route: 048

REACTIONS (8)
  - ANAEMIA [None]
  - ANXIETY [None]
  - CORONARY ARTERY DISEASE [None]
  - HYPOKALAEMIA [None]
  - MITRAL VALVE DISEASE [None]
  - OEDEMA PERIPHERAL [None]
  - WEIGHT DECREASED [None]
  - WHITE BLOOD CELL COUNT INCREASED [None]
